FAERS Safety Report 7656143-2 (Version None)
Quarter: 2011Q3

REPORT INFORMATION
  Report Type: 
  Country: None (occurrence: None)
  Receive Date: 20110801
  Receipt Date: 20110722
  Transmission Date: 20111222
  Serious: Yes (Other)
  Sender: FDA-Public Use
  Company Number: 2011SP034944

PATIENT
  Age: 68 Year
  Sex: Female
  Weight: 47.6 kg

DRUGS (10)
  1. AMLODIPINE /00972402/ [Concomitant]
  2. REBETOL [Suspect]
     Indication: HEPATITIS C
     Dosage: 600 MG;QD;PO ; 400 MG;QD;PO
     Route: 048
     Dates: start: 20100612, end: 20100723
  3. REBETOL [Suspect]
     Indication: HEPATITIS C
     Dosage: 600 MG;QD;PO ; 400 MG;QD;PO
     Route: 048
     Dates: start: 20100724
  4. SEDEKOPAN [Concomitant]
  5. OLMESARTAN MEDOXOMIL [Concomitant]
  6. INTERFERON BETA NOS [Suspect]
     Indication: HEPATITIS C
     Dosage: 6 MIU;QD;IV ; 6 MIU;TIW;IV
     Route: 042
     Dates: start: 20100612, end: 20100625
  7. INTERFERON BETA NOS [Suspect]
     Indication: HEPATITIS C
     Dosage: 6 MIU;QD;IV ; 6 MIU;TIW;IV
     Route: 042
     Dates: start: 20100626
  8. LOXONIN (LOXOPROFEN SODIUM) [Concomitant]
  9. ZESTROMIN [Concomitant]
  10. ZOLPIDEM [Concomitant]

REACTIONS (1)
  - BLOOD GLUCOSE INCREASED [None]
